FAERS Safety Report 8550872-4 (Version None)
Quarter: 2012Q3

REPORT INFORMATION
  Report Type: 
  Country: None (occurrence: None)
  Receive Date: 20120730
  Receipt Date: 20111011
  Transmission Date: 20120928
  Serious: No
  Sender: FDA-Public Use
  Company Number: US-GLAXOSMITHKLINE-A0948650A

PATIENT
  Age: 52 Year
  Sex: Male

DRUGS (10)
  1. ZOLOFT [Concomitant]
  2. LISINOPRIL [Concomitant]
  3. LANTUS [Concomitant]
  4. LASIX [Concomitant]
  5. PRILOSEC [Concomitant]
  6. XANAX [Concomitant]
  7. MELOXICAM [Concomitant]
  8. ZANTAC [Suspect]
     Indication: GASTRIC ULCER
     Dosage: 150MG TWICE PER DAY
     Route: 048
     Dates: start: 20090101
  9. LORTAB [Concomitant]
  10. TAGAMET [Concomitant]

REACTIONS (1)
  - DRUG SCREEN FALSE POSITIVE [None]
